FAERS Safety Report 6736491-0 (Version None)
Quarter: 2010Q2

REPORT INFORMATION
  Report Type: 
  Country: None (occurrence: None)
  Receive Date: 20100521
  Receipt Date: 20100514
  Transmission Date: 20101027
  Serious: Yes (Life-Threatening, Hospitalization, Other)
  Sender: FDA-Public Use
  Company Number: US-BRISTOL-MYERS SQUIBB COMPANY-15109002

PATIENT
  Age: 13 Year
  Sex: Female
  Weight: 29 kg

DRUGS (8)
  1. DASATINIB [Suspect]
     Indication: BONE SARCOMA
     Dosage: INTERRUPTED 01DEC08; CONTINUED AT 25 MG/M2 BID 12DEC TO 13DEC08
     Dates: start: 20081126
  2. IFOSFAMIDE [Suspect]
     Indication: BONE SARCOMA
     Route: 042
     Dates: start: 20081122, end: 20081126
  3. CARBOPLATIN [Suspect]
     Indication: BONE SARCOMA
     Route: 042
     Dates: start: 20081121, end: 20081122
  4. ETOPOSIDE [Suspect]
     Indication: BONE SARCOMA
     Route: 042
     Dates: start: 20081122, end: 20081126
  5. NEUPOGEN [Concomitant]
     Dates: start: 20081126, end: 20081207
  6. TYLENOL [Concomitant]
     Route: 048
  7. BENADRYL [Concomitant]
     Indication: PREMEDICATION
     Route: 042
  8. BACTRIM [Concomitant]
     Dosage: F/S/S
     Route: 048

REACTIONS (10)
  - FLUID OVERLOAD [None]
  - GASTRITIS [None]
  - HERPES SIMPLEX [None]
  - NEUROTOXICITY [None]
  - PERICARDIAL HAEMORRHAGE [None]
  - PNEUMONIA [None]
  - RENAL IMPAIRMENT [None]
  - RESPIRATORY DISTRESS [None]
  - TREMOR [None]
  - UPPER GASTROINTESTINAL HAEMORRHAGE [None]
